FAERS Safety Report 5634751-8 (Version None)
Quarter: 2008Q1

REPORT INFORMATION
  Report Type: 
  Country: None (occurrence: None)
  Receive Date: 20080222
  Receipt Date: 20080219
  Transmission Date: 20080703
  Serious: Yes (Life-Threatening, Other)
  Sender: FDA-Public Use
  Company Number: US-BRISTOL-MYERS SQUIBB COMPANY-14033450

PATIENT
  Age: 80 Year
  Sex: Female

DRUGS (5)
  1. ORENCIA [Suspect]
     Indication: RHEUMATOID ARTHRITIS
     Dosage: 7TH OR 8TH CYCLE RECEIVED ON 03JAN2008(35 MINS); 1 DOSAGE FORM = 1 VIAL
     Route: 042
     Dates: start: 20060531, end: 20080103
  2. FOSAMAX [Concomitant]
     Dates: start: 20071230
  3. PREDNISONE TAB [Concomitant]
     Dates: start: 20080103
  4. LOTENSIN HCT [Concomitant]
     Dates: start: 20080103
  5. LEVOTHYROXINE SODIUM [Concomitant]
     Dates: start: 20080130

REACTIONS (2)
  - BLOOD PRESSURE INCREASED [None]
  - FLUSHING [None]
